FAERS Safety Report 8115494-8 (Version None)
Quarter: 2012Q1

REPORT INFORMATION
  Report Type: 
  Country: None (occurrence: None)
  Receive Date: 20120206
  Receipt Date: 20120201
  Transmission Date: 20120608
  Serious: No
  Sender: FDA-Public Use
  Company Number: US-PFIZER INC-2012017265

PATIENT
  Sex: Female
  Weight: 61.2 kg

DRUGS (7)
  1. METFORMIN [Concomitant]
     Indication: DIABETES MELLITUS
     Dosage: UNK
     Dates: start: 20111027
  2. PREMPRO [Suspect]
     Dosage: 0.625/5 MG
     Route: 048
     Dates: start: 20120101
  3. PREMPHASE (PREMARIN;CYCRIN 14/14) [Suspect]
     Dosage: 0.625/5 MG, DAILY
     Route: 048
  4. PREMPRO [Suspect]
     Indication: HORMONE REPLACEMENT THERAPY
     Dosage: 0.625/5 MG, DAILY
     Route: 048
  5. AMITRIPTYLINE [Concomitant]
     Indication: SLEEP DISORDER
     Dosage: 75 MG, DAILY
  6. PREMPHASE (PREMARIN;CYCRIN 14/14) [Suspect]
     Indication: HORMONE REPLACEMENT THERAPY
     Dosage: 0.625 MG, 1X/DAY
     Route: 048
     Dates: start: 20110101
  7. SIMVASTATIN [Suspect]
     Indication: BLOOD CHOLESTEROL INCREASED
     Dosage: 20 MG, DAILY
     Dates: start: 20120113, end: 20120130

REACTIONS (5)
  - FEELING ABNORMAL [None]
  - HOT FLUSH [None]
  - HEAT RASH [None]
  - PRURITUS [None]
  - STRESS [None]
